FAERS Safety Report 10064689 (Version 1)
Quarter: 2014Q1

REPORT INFORMATION
  Report Type: Spontaneous
  Country: US (occurrence: None)
  Receive Date: 20140328
  Receipt Date: 20140328
  Transmission Date: 20141002
  Serious: No
  Sender: FDA-Public Use
  Company Number: 1000053057

PATIENT
  Age: 72 Year
  Sex: Female

DRUGS (4)
  1. LINZESS (LINACLOTIDE) (145 MICROGRAM, CAPSULES) [Suspect]
     Indication: GASTROINTESTINAL HYPOMOTILITY
     Route: 048
     Dates: start: 20140115
  2. PREMARIN (ESTROGENS CONJUGATED) (ESTROGENS CONJUGATED) [Concomitant]
  3. VITAMIN D (VITAMIN D) [Concomitant]
  4. VITAMIN B12 (VITAMIN B12) [Concomitant]

REACTIONS (5)
  - Off label use [None]
  - Diarrhoea [None]
  - Intentional drug misuse [None]
  - Flatulence [None]
  - Drug ineffective [None]
